FAERS Safety Report 12381795 (Version 2)
Quarter: 2016Q2

REPORT INFORMATION
  Report Type: Report from Study
  Country: US (occurrence: US)
  Receive Date: 20160518
  Receipt Date: 20160524
  Transmission Date: 20160815
  Serious: Yes (Death)
  Sender: FDA-Public Use
  Company Number: US-ACTELION-A-US2016-136087

PATIENT
  Age: 74 Year
  Sex: Male

DRUGS (12)
  1. LEFLUNOMIDE. [Concomitant]
     Active Substance: LEFLUNOMIDE
  2. TRACLEER [Suspect]
     Active Substance: BOSENTAN
     Indication: PULMONARY ARTERIAL HYPERTENSION
     Dosage: 125 MG, BID
     Route: 048
     Dates: start: 20120727
  3. METOLAZONE. [Concomitant]
     Active Substance: METOLAZONE
  4. WARFARIN [Concomitant]
     Active Substance: WARFARIN
  5. PERCOCET [Concomitant]
     Active Substance: ACETAMINOPHEN\OXYCODONE HYDROCHLORIDE
  6. MORPHINE SULFATE. [Concomitant]
     Active Substance: MORPHINE SULFATE
  7. POTASSIUM [Concomitant]
     Active Substance: POTASSIUM
  8. NITROGLYCERIN. [Concomitant]
     Active Substance: NITROGLYCERIN
  9. CARBAMAZEPINE. [Concomitant]
     Active Substance: CARBAMAZEPINE
  10. ALLOPURINOL. [Concomitant]
     Active Substance: ALLOPURINOL
  11. LASIX [Concomitant]
     Active Substance: FUROSEMIDE
  12. ZOCOR [Concomitant]
     Active Substance: SIMVASTATIN

REACTIONS (4)
  - Disease complication [Fatal]
  - Chronic obstructive pulmonary disease [Fatal]
  - Respiratory failure [Fatal]
  - Pneumonia [Fatal]

NARRATIVE: CASE EVENT DATE: 20160413
